FAERS Safety Report 6397142-0 (Version None)
Quarter: 2009Q4

REPORT INFORMATION
  Report Type: 
  Country: None (occurrence: None)
  Receive Date: 20091012
  Receipt Date: 20090928
  Transmission Date: 20100525
  Serious: Yes (Hospitalization)
  Sender: FDA-Public Use
  Company Number: B0536454A

PATIENT
  Sex: Female
  Weight: 58 kg

DRUGS (9)
  1. VALTREX [Suspect]
     Indication: HERPES ZOSTER
     Dosage: 1000MG THREE TIMES PER DAY
     Route: 048
     Dates: start: 20080828, end: 20080831
  2. VALTREX [Suspect]
     Dosage: 500MG THREE TIMES PER DAY
     Route: 048
     Dates: start: 20080901, end: 20080902
  3. VOLTAREN [Suspect]
     Indication: PAIN
     Route: 048
  4. URSO 250 [Concomitant]
     Indication: CHOLELITHIASIS
     Route: 048
  5. PURSENNID [Concomitant]
     Indication: CONSTIPATION
     Route: 048
  6. UNKNOWN MEDICATION [Concomitant]
     Indication: HYPERTENSION
     Dosage: 20MG PER DAY
     Route: 048
  7. D-ALFA [Concomitant]
     Indication: OSTEOPOROSIS
     Route: 048
  8. CRAVIT [Concomitant]
     Indication: CYSTITIS
     Route: 048
     Dates: start: 20080826, end: 20080828
  9. MANIDIPINE HYDROCHLORIDE [Concomitant]
     Indication: HYPERTENSION
     Dosage: 20MG PER DAY
     Route: 048

REACTIONS (6)
  - ACIDOSIS [None]
  - DECREASED APPETITE [None]
  - MALAISE [None]
  - NAUSEA [None]
  - RENAL FAILURE ACUTE [None]
  - URINE OUTPUT DECREASED [None]
